FAERS Safety Report 11653504 (Version 1)
Quarter: 2015Q4

REPORT INFORMATION
  Report Type: Spontaneous
  Country: US (occurrence: US)
  Receive Date: 20151022
  Receipt Date: 20151022
  Transmission Date: 20160304
  Serious: No
  Sender: FDA-Public Use
  Company Number: US-BAYER-2015-443147

PATIENT
  Age: 78 Year
  Sex: Female
  Weight: 89.8 kg

DRUGS (5)
  1. ALEVE [Suspect]
     Active Substance: NAPROXEN SODIUM
     Indication: PAIN
     Dosage: 2 DF, QD
     Route: 048
     Dates: start: 2010
  2. OMEGA 3 [Concomitant]
     Active Substance: OMEGA-3 FATTY ACIDS
  3. ALEVE [Suspect]
     Active Substance: NAPROXEN SODIUM
     Indication: INFLAMMATION
  4. FLINTSTONES GUMMIES [Suspect]
     Active Substance: VITAMINS
     Dosage: 2 DF, QD WITH FOOD
     Route: 048
     Dates: start: 2014
  5. PRAMIPEXOLE. [Concomitant]
     Active Substance: PRAMIPEXOLE

REACTIONS (3)
  - Product use issue [None]
  - Expired product administered [None]
  - Product use issue [None]

NARRATIVE: CASE EVENT DATE: 201408
